FAERS Safety Report 4369507-X (Version None)
Quarter: 2004Q2

REPORT INFORMATION
  Report Type: 
  Country: None (occurrence: None)
  Receive Date: 20040527
  Receipt Date: 20040513
  Transmission Date: 20050107
  Serious: Yes (Death)
  Sender: FDA-Public Use
  Company Number: KII-2002-0010355

PATIENT
  Age: 55 Year
  Sex: Male

DRUGS (6)
  1. OXYCONTIN [Suspect]
     Dosage: 20 MG, HS
  2. TESTOSTERONE [Suspect]
  3. FOSAMAX [Suspect]
  4. INDOCIN [Suspect]
  5. NORCO [Suspect]
  6. PAXIL [Suspect]

REACTIONS (1)
  - COMPLETED SUICIDE [None]
